FAERS Safety Report 6464022-1 (Version None)
Quarter: 2009Q4

REPORT INFORMATION
  Report Type: 
  Country: None (occurrence: None)
  Receive Date: 20091201
  Receipt Date: 20091123
  Transmission Date: 20100525
  Serious: Yes (Hospitalization)
  Sender: FDA-Public Use
  Company Number: DE-NAPPMUNDI-DEU-2009-0005598

PATIENT
  Age: 79 Year
  Sex: Female
  Weight: 43 kg

DRUGS (10)
  1. PALLADON 1,3MG HARTKAPSELN [Interacting]
     Indication: PAIN
     Dosage: 1.3 MG, DAILY
     Route: 048
     Dates: start: 20090501, end: 20090826
  2. IBUPROFEN [Suspect]
     Indication: PAIN
     Dosage: 600 MG, DAILY
     Route: 048
     Dates: start: 20090501
  3. HYDROMORPHONE HCL [Interacting]
     Indication: PAIN
     Dosage: 8 MG, DAILY
     Route: 048
     Dates: start: 20090501, end: 20090824
  4. ISOPTIN RR PLUS [Interacting]
     Indication: ATRIAL FIBRILLATION
     Dosage: UNK
     Dates: start: 20070101
  5. LOSARTAN POTASSIUM AND HYDROCHLOROTHIAZIDE [Interacting]
     Indication: HYPERTENSION
     Dosage: UNK
  6. CELEBREX [Concomitant]
     Indication: PAIN
     Dosage: 100 MG, UNK
     Route: 048
     Dates: start: 20080101, end: 20090826
  7. DOMPERIDONE [Concomitant]
  8. FALITHROM [Concomitant]
  9. PANTOPRAZOLE [Concomitant]
  10. PENTAERYTHRITOL TETRANITRATE [Concomitant]

REACTIONS (1)
  - FAECALOMA [None]
